FAERS Safety Report 6772525-5 (Version None)
Quarter: 2010Q2

REPORT INFORMATION
  Report Type: 
  Country: None (occurrence: None)
  Receive Date: 20100616
  Receipt Date: 20091215
  Transmission Date: 20101027
  Serious: No
  Sender: FDA-Public Use
  Company Number: US-ASTRAZENECA-2009SE18674

PATIENT
  Age: 78 Year
  Sex: Female
  Weight: 61.2 kg

DRUGS (11)
  1. PULMICORT RESPULES [Suspect]
     Route: 055
  2. PROFORMIST [Concomitant]
  3. NAMENDA [Concomitant]
  4. WELLBUTRIN [Concomitant]
  5. METOPROLOL TARTRATE [Concomitant]
  6. VALTURNA [Concomitant]
  7. SPIRIVA [Concomitant]
  8. MUCINEX [Concomitant]
  9. CALCIUM CARBONATE [Concomitant]
  10. VITAMIN B-12 [Concomitant]
  11. ASPIRIN [Concomitant]

REACTIONS (2)
  - CANDIDIASIS [None]
  - DYSPNOEA [None]
